FAERS Safety Report 10289954 (Version 1)
Quarter: 2014Q3

REPORT INFORMATION
  Report Type: Spontaneous
  Country: NL (occurrence: None)
  Receive Date: 20140708
  Receipt Date: 20140708
  Transmission Date: 20150326
  Serious: Yes (Hospitalization, Other)
  Sender: FDA-Public Use
  Company Number: KAD201407-000723

PATIENT
  Age: 46 Year
  Sex: Male

DRUGS (9)
  1. RIBAVIRIN. [Suspect]
     Active Substance: RIBAVIRIN
     Indication: CHRONIC HEPATITIS C
  2. TELAPREVIR (TELAPREVIR) [Suspect]
     Active Substance: TELAPREVIR
     Indication: CHRONIC HEPATITIS C
  3. SIMVASTATIN (SIMVASTATIN) [Suspect]
     Active Substance: SIMVASTATIN
  4. LACTULOSE (LACTULOSE) [Suspect]
     Active Substance: LACTULOSE
  5. ENALAPRIL (ENALAPRIL) [Suspect]
     Active Substance: ENALAPRIL
  6. OMEPRAZOLE (OMEPRAZOLE) [Suspect]
     Active Substance: OMEPRAZOLE
  7. HYDROCHLOROTHIAZIDE (HYDROCHLOROTHIAZIDE) [Suspect]
     Active Substance: HYDROCHLOROTHIAZIDE
  8. PEGYLATED INTERFERON ALPHA NOS [Suspect]
     Active Substance: PEGINTERFERON ALFA-2A OR PEGINTERFERON ALFA-2B
     Indication: CHRONIC HEPATITIS C
  9. METFORMIN [Suspect]
     Active Substance: METFORMIN HYDROCHLORIDE

REACTIONS (15)
  - Dysuria [None]
  - Nausea [None]
  - Toxicity to various agents [None]
  - Drug interaction [None]
  - Rhabdomyolysis [None]
  - Dyspnoea exertional [None]
  - Tremor [None]
  - Haemoglobin decreased [None]
  - Oedema [None]
  - Pyrexia [None]
  - Musculoskeletal pain [None]
  - Decreased appetite [None]
  - Back pain [None]
  - Bacterial infection [None]
  - Fatigue [None]
